FAERS Safety Report 21341113 (Version 1)
Quarter: 2022Q3

REPORT INFORMATION
  Report Type: Spontaneous
  Country: ZA (occurrence: ZA)
  Receive Date: 20220916
  Receipt Date: 20220916
  Transmission Date: 20221026
  Serious: Yes (Hospitalization, Other)
  Sender: FDA-Public Use
  Company Number: ZA-CIPLA LTD.-2022ZA05520

PATIENT
  Sex: Female

DRUGS (4)
  1. WARFARIN [Suspect]
     Active Substance: WARFARIN
     Indication: Deep vein thrombosis
     Dosage: 10 MILLIGRAM, UNK
     Route: 065
     Dates: start: 20220629, end: 20220720
  2. WARFARIN [Suspect]
     Active Substance: WARFARIN
     Dosage: 5 MILLIGRAM ,DAILY
     Route: 048
     Dates: start: 20220726
  3. ENOXAPARIN SODIUM [Suspect]
     Active Substance: ENOXAPARIN SODIUM
     Indication: Product used for unknown indication
     Dosage: 60 MG, BID
     Route: 058
  4. FERROUS SULPHATE + FOLIC ACID [Concomitant]
     Indication: Supplementation therapy
     Dosage: 200 MG PLUS 100 MG, UNK
     Route: 048
     Dates: start: 20220629

REACTIONS (4)
  - Anticoagulation drug level below therapeutic [Recovered/Resolved]
  - Anticoagulation drug level above therapeutic [Recovered/Resolved]
  - Haemorrhage [Unknown]
  - Exposure during pregnancy [Unknown]

NARRATIVE: CASE EVENT DATE: 20220713
